FAERS Safety Report 6956041-3 (Version None)
Quarter: 2010Q3

REPORT INFORMATION
  Report Type: 
  Country: None (occurrence: None)
  Receive Date: 20100830
  Receipt Date: 20100820
  Transmission Date: 20110219
  Serious: Yes (Hospitalization)
  Sender: FDA-Public Use
  Company Number: GXKR2010GR09374

PATIENT
  Age: 73 Year
  Sex: Male

DRUGS (1)
  1. EPIRUBICIN [Suspect]
     Indication: BLADDER TRANSITIONAL CELL CARCINOMA
     Dosage: 2 INSTILLATIONS
     Route: 043

REACTIONS (16)
  - ABDOMINAL DISTENSION [None]
  - BLADDER CATHETERISATION [None]
  - BLADDER PERFORATION [None]
  - CELLULITIS [None]
  - CHILLS [None]
  - DYSURIA [None]
  - EXTRAVASATION [None]
  - FIBROSIS [None]
  - MALAISE [None]
  - MICTURITION URGENCY [None]
  - POST PROCEDURAL DRAINAGE [None]
  - PYREXIA [None]
  - REDUCED BLADDER CAPACITY [None]
  - SOFT TISSUE NECROSIS [None]
  - SURGERY [None]
  - SUTURE INSERTION [None]
